FAERS Safety Report 24591926 (Version 3)
Quarter: 2025Q1

REPORT INFORMATION
  Report Type: Other
  Country: DE (occurrence: DE)
  Receive Date: 20241108
  Receipt Date: 20250304
  Transmission Date: 20250408
  Serious: No
  Sender: BLUEPRINT MEDICINES
  Company Number: DE-Blueprint Medicines Corporation-LT-DE-2024-002272

PATIENT

DRUGS (1)
  1. AVAPRITINIB [Suspect]
     Active Substance: AVAPRITINIB
     Indication: Indolent systemic mastocytosis
     Route: 065

REACTIONS (3)
  - Headache [Recovered/Resolved]
  - Fatigue [Unknown]
  - Drug ineffective [Unknown]
